FAERS Safety Report 9470635 (Version 1)
Quarter: 2013Q3

REPORT INFORMATION
  Report Type: Spontaneous
  Country: US (occurrence: US)
  Receive Date: 20130822
  Receipt Date: 20130822
  Transmission Date: 20140515
  Serious: No
  Sender: FDA-Public Use
  Company Number: US-PFIZER INC-2013242715

PATIENT
  Age: 65 Year
  Sex: Female
  Weight: 81.63 kg

DRUGS (4)
  1. LYRICA [Suspect]
     Indication: FIBROMYALGIA
     Dosage: 50 MG, 3X/DAY
  2. LYRICA [Suspect]
     Dosage: 75 MG, 3X/DAY
  3. LYRICA [Suspect]
     Dosage: 75 MG, 2X/DAY
  4. DEMEROL [Suspect]
     Indication: PAIN
     Dosage: UNK

REACTIONS (2)
  - Intentional drug misuse [Unknown]
  - Drug hypersensitivity [Unknown]
